FAERS Safety Report 4906697-1 (Version None)
Quarter: 2006Q1

REPORT INFORMATION
  Report Type: 
  Country: None (occurrence: None)
  Receive Date: 20060206
  Receipt Date: 20060123
  Transmission Date: 20060701
  Serious: Yes (Hospitalization, Other)
  Sender: FDA-Public Use
  Company Number: 23481-2

PATIENT
  Age: 65 Year
  Sex: Male
  Weight: 66 kg

DRUGS (1)
  1. DACARBAZINE [Suspect]
     Indication: METASTATIC MALIGNANT MELANOMA
     Dosage: 1730 MG, IV
     Route: 042
     Dates: start: 20051010, end: 20051212

REACTIONS (5)
  - ABSCESS [None]
  - DIVERTICULITIS [None]
  - INTESTINAL PERFORATION [None]
  - NEPHROLITHIASIS [None]
  - URETERIC OBSTRUCTION [None]
